FAERS Safety Report 8352071-8 (Version None)
Quarter: 2012Q2

REPORT INFORMATION
  Report Type: 
  Country: None (occurrence: None)
  Receive Date: 20120511
  Receipt Date: 20120507
  Transmission Date: 20120825
  Serious: Yes (Hospitalization)
  Sender: FDA-Public Use
  Company Number: CA-AMGEN-CANSP2012028732

PATIENT
  Age: 69 Year
  Sex: Male

DRUGS (11)
  1. ARANESP [Suspect]
     Indication: PRODUCT USED FOR UNKNOWN INDICATION
     Dosage: 50 MG, QWK
     Route: 058
  2. GLICLAZIDE [Concomitant]
     Dosage: 40 MG, QD
     Route: 048
  3. REPLAVITE                          /00058902/ [Concomitant]
     Dosage: UNK UNK, QD
     Route: 048
  4. LASOPRAZOLE [Concomitant]
     Dosage: 30 MG, BID
     Route: 048
  5. TRAMADOL HYDROCHLORIDE/ACETAMINOPHEN [Concomitant]
     Dosage: UNK UNK, QID
     Route: 048
  6. DIGOXIN [Concomitant]
     Dosage: 0.65 MG, QD
     Route: 048
  7. PENTASA [Concomitant]
     Dosage: 400 MG, QID
     Route: 048
  8. CELECOXIB [Concomitant]
     Dosage: 100 MG, BID
     Route: 048
  9. SENSIPAR [Suspect]
     Indication: PRODUCT USED FOR UNKNOWN INDICATION
     Dosage: 60 MG, QD
     Route: 048
     Dates: start: 20120201
  10. MULTIVITAMIN                       /00097801/ [Concomitant]
     Dosage: UNK UNK, BID
     Route: 048
  11. RANITIDINE [Concomitant]
     Dosage: 150 MG, QD
     Route: 048

REACTIONS (2)
  - MYOCARDIAL INFARCTION [None]
  - CEREBROVASCULAR ACCIDENT [None]
